FAERS Safety Report 8469596 (Version 3)
Quarter: 2012Q4

REPORT INFORMATION
  Report Type: 
  Country: US (occurrence: US)
  Receive Date: 20120321
  Receipt Date: 20121010
  Transmission Date: 20130627
  Serious: Yes (Hospitalization)
  Sender: FDA-Public Use
  Company Number: US-BAYER-2012-024488

PATIENT
  Age: 30 Year
  Sex: Female
  Weight: 99.77 kg

DRUGS (4)
  1. YAZ [Suspect]
     Dosage: UNK
     Route: 048
     Dates: start: 200601, end: 2008
  2. YASMIN [Suspect]
     Dosage: UNK
     Route: 048
     Dates: start: 20060106, end: 20080131
  3. GLUCOPHAGE XR [Concomitant]
     Dosage: 500 mg, HS
     Dates: start: 20080102
  4. ALEVE [Concomitant]
     Dosage: UNK, HS

REACTIONS (9)
  - Deep vein thrombosis [Recovered/Resolved]
  - Pain [Recovered/Resolved]
  - General physical health deterioration [Recovered/Resolved]
  - General physical health deterioration [Recovered/Resolved]
  - Pain in extremity [Recovered/Resolved]
  - Emotional distress [None]
  - Anhedonia [None]
  - Anxiety [None]
  - Fear [None]
